FAERS Safety Report 8573048 (Version 4)
Quarter: 2013Q4

REPORT INFORMATION
  Report Type: Spontaneous
  Country: JP (occurrence: JP)
  Receive Date: 20120514
  Receipt Date: 20131031
  Transmission Date: 20140711
  Serious: Yes (Death)
  Sender: FDA-Public Use
  Company Number: JP-009507513-2012SP024851

PATIENT
  Age: 31 Year
  Sex: Male

DRUGS (3)
  1. REFLEX [Suspect]
     Indication: DEPRESSION
     Dosage: 30 MG, QD
     Route: 048
     Dates: start: 20120418, end: 20120502
  2. RESLIN TABLETS 25 [Suspect]
     Indication: DEPRESSION
     Dosage: 75 MG, QD
     Route: 048
     Dates: start: 20091117, end: 20120502
  3. CLOXAZOLAM [Concomitant]
     Indication: ANXIETY
     Dosage: 4-6 MG DAILY
     Route: 048
     Dates: start: 20090420, end: 20120502

REACTIONS (1)
  - Completed suicide [Fatal]
